FAERS Safety Report 8003934-4 (Version None)
Quarter: 2011Q4

REPORT INFORMATION
  Report Type: 
  Country: None (occurrence: None)
  Receive Date: 20111222
  Receipt Date: 20111215
  Transmission Date: 20120403
  Serious: Yes (Death)
  Sender: FDA-Public Use
  Company Number: US-CELGENEUS-163-21880-11111989

PATIENT
  Sex: Male

DRUGS (5)
  1. VELCADE [Concomitant]
     Indication: MULTIPLE MYELOMA
     Dosage: 3.3 MILLIGRAM
     Route: 048
     Dates: start: 20110721, end: 20111028
  2. REVLIMID [Suspect]
     Indication: MULTIPLE MYELOMA
     Dosage: 15 MILLIGRAM
     Route: 048
     Dates: start: 20110207, end: 20110805
  3. VELCADE [Concomitant]
     Dosage: 1.8 MILLIGRAM
     Route: 048
     Dates: start: 20111028
  4. REVLIMID [Suspect]
     Dosage: 15 MILLIGRAM
     Route: 048
     Dates: start: 20110805, end: 20111028
  5. DEXAMETHASONE [Concomitant]
     Indication: MULTIPLE MYELOMA
     Dosage: 20 MILLIGRAM
     Route: 048
     Dates: start: 20110207, end: 20111028

REACTIONS (1)
  - MULTIPLE MYELOMA [None]
